FAERS Safety Report 19575712 (Version 1)
Quarter: 2021Q3

REPORT INFORMATION
  Report Type: Spontaneous
  Country: US (occurrence: US)
  Receive Date: 20210719
  Receipt Date: 20210719
  Transmission Date: 20211014
  Serious: No
  Sender: FDA-Public Use
  Company Number: US-SA-2021SA232628

PATIENT
  Age: 56 Year
  Sex: Female

DRUGS (1)
  1. DUPIXENT [Suspect]
     Active Substance: DUPILUMAB
     Indication: ASTHMA
     Dosage: 300MG/2ML, QOW
     Route: 058
     Dates: start: 20200904

REACTIONS (2)
  - Product use issue [Unknown]
  - Asthma [Unknown]

NARRATIVE: CASE EVENT DATE: 20200904
